FAERS Safety Report 23947804 (Version 1)
Quarter: 2024Q2

REPORT INFORMATION
  Report Type: Spontaneous
  Country: GB (occurrence: GB)
  Receive Date: 20240606
  Receipt Date: 20240606
  Transmission Date: 20240715
  Serious: Yes (Hospitalization, Other)
  Sender: FDA-Public Use
  Company Number: GB-SANDOZ-SDZ2023GB032803

PATIENT
  Sex: Male

DRUGS (3)
  1. TACROLIMUS [Suspect]
     Active Substance: TACROLIMUS
     Indication: Product used for unknown indication
     Dosage: 1 MG, BID
     Route: 048
  2. TACROLIMUS [Suspect]
     Active Substance: TACROLIMUS
     Dosage: 2 MG, BID
     Route: 048
  3. PREDNISOLONE [Concomitant]
     Active Substance: PREDNISOLONE
     Indication: Product used for unknown indication
     Dosage: 5 MG, 28 STRIDE
     Route: 065

REACTIONS (1)
  - Limb injury [Unknown]
